FAERS Safety Report 6832393-X (Version None)
Quarter: 2010Q3

REPORT INFORMATION
  Report Type: 
  Country: None (occurrence: None)
  Receive Date: 20100712
  Receipt Date: 20100707
  Transmission Date: 20110219
  Serious: Yes (Death, Hospitalization)
  Sender: FDA-Public Use
  Company Number: US-CEPHALON-2010003338

PATIENT
  Sex: Female

DRUGS (8)
  1. NUVIGIL [Suspect]
     Indication: CIRCADIAN RHYTHM SLEEP DISORDER
     Route: 048
     Dates: start: 20100217
  2. CYMBALTA [Concomitant]
  3. IMITREX [Concomitant]
  4. ULTRAM [Concomitant]
     Indication: MIGRAINE
  5. LORTAB [Concomitant]
  6. XANAX [Concomitant]
  7. RELPAX [Concomitant]
     Indication: MIGRAINE
  8. TRAZODONE [Concomitant]

REACTIONS (8)
  - AMMONIA INCREASED [None]
  - APNOEA [None]
  - CONVULSION [None]
  - INSOMNIA [None]
  - OVERDOSE [None]
  - SOMNAMBULISM [None]
  - STATUS EPILEPTICUS [None]
  - UNRESPONSIVE TO STIMULI [None]
